FAERS Safety Report 7296942-2 (Version None)
Quarter: 2011Q1

REPORT INFORMATION
  Report Type: 
  Country: None (occurrence: None)
  Receive Date: 20110216
  Receipt Date: 20110210
  Transmission Date: 20110831
  Serious: Yes (Other)
  Sender: FDA-Public Use
  Company Number: DE-JNJFOC-20101208162

PATIENT
  Age: 71 Year
  Sex: Female

DRUGS (1)
  1. TAVANIC [Suspect]
     Indication: ILL-DEFINED DISORDER
     Route: 048

REACTIONS (4)
  - C-REACTIVE PROTEIN INCREASED [None]
  - SOMNOLENCE [None]
  - GLOMERULAR FILTRATION RATE DECREASED [None]
  - OVERDOSE [None]
